FAERS Safety Report 4932746-0 (Version None)
Quarter: 2006Q1

REPORT INFORMATION
  Report Type: 
  Country: None (occurrence: None)
  Receive Date: 20060301
  Receipt Date: 20060301
  Transmission Date: 20060701
  Serious: Yes (Other)
  Sender: FDA-Public Use
  Company Number: None

PATIENT
  Age: 70 Year
  Sex: Female
  Weight: 62.5964 kg

DRUGS (6)
  1. TAXOTERE [Suspect]
     Indication: URETERIC CANCER METASTATIC
     Dosage: 128.MG/Q3 WEEK/ IV
     Route: 042
     Dates: start: 20051011
  2. GLEEVEC [Suspect]
     Indication: URETERIC CANCER METASTATIC
     Dosage: 600MG/QD FOR 6 DAYS/PO
     Route: 048
     Dates: start: 20051028, end: 20051031
  3. LORA TAB [Concomitant]
  4. TRADADONE [Concomitant]
  5. NAPROSEN [Concomitant]
  6. NYSTATIN [Concomitant]

REACTIONS (1)
  - BLOOD ALKALINE PHOSPHATASE INCREASED [None]
